FAERS Safety Report 6534704-1 (Version None)
Quarter: 2009Q4

REPORT INFORMATION
  Report Type: 
  Country: None (occurrence: None)
  Receive Date: 20091228
  Receipt Date: 20091008
  Transmission Date: 20100525
  Serious: Yes (Life-Threatening, Hospitalization)
  Sender: FDA-Public Use
  Company Number: US-003543

PATIENT
  Sex: Female

DRUGS (1)
  1. MULTIHANCE [Suspect]
     Indication: DIAGNOSTIC PROCEDURE
     Dosage: ONCE INTRAVENOUS
     Route: 042
     Dates: start: 20091006, end: 20091006

REACTIONS (1)
  - ANAPHYLACTIC REACTION [None]
